FAERS Safety Report 26024138 (Version 1)
Quarter: 2025Q4

REPORT INFORMATION
  Report Type: Report from Study
  Country: US (occurrence: US)
  Receive Date: 20251111
  Receipt Date: 20251111
  Transmission Date: 20260119
  Serious: Yes (Other)
  Sender: BAXTER
  Company Number: US-BAXTER-2025BAX023703

PATIENT
  Age: 74 Year
  Sex: Female
  Weight: 81.6 kg

DRUGS (3)
  1. DOXIL [Suspect]
     Active Substance: DOXORUBICIN HYDROCHLORIDE
     Indication: Triple negative breast cancer
     Dosage: 40 MG/M2, EVERY 4 WK (CYCLIC)
     Route: 042
     Dates: start: 20251010, end: 20251010
  2. AVELUMAB [Suspect]
     Active Substance: AVELUMAB
     Indication: Triple negative breast cancer
     Dosage: 10 MG/KG, EVERY 2 WK (CYCLIC)
     Route: 042
     Dates: start: 20251010, end: 20251010
  3. BINIMETINIB [Suspect]
     Active Substance: BINIMETINIB
     Indication: Triple negative breast cancer
     Dosage: 45 MG, BID
     Route: 048
     Dates: start: 20250926, end: 20251013

REACTIONS (1)
  - Infusion related reaction [Recovered/Resolved]

NARRATIVE: CASE EVENT DATE: 20251010
